FAERS Safety Report 6155455-1 (Version None)
Quarter: 2009Q2

REPORT INFORMATION
  Report Type: 
  Country: None (occurrence: None)
  Receive Date: 20090415
  Receipt Date: 20090408
  Transmission Date: 20091009
  Serious: Yes (Other)
  Sender: FDA-Public Use
  Company Number: PHHY2009JP13579

PATIENT
  Age: 71 Year
  Sex: Male

DRUGS (12)
  1. ZOMETA [Suspect]
     Indication: PROSTATE CANCER
     Dosage: 4 MG (INTERVAL NOT PROVIDED)
     Route: 042
  2. PREDNISOLONE [Concomitant]
     Dosage: UNK
  3. GASTER [Concomitant]
     Dosage: UNK
  4. LASIX [Concomitant]
     Dosage: UNK
  5. HARNAL [Concomitant]
     Dosage: UNK
     Route: 048
  6. TAXOTERE [Concomitant]
     Dosage: UNK
  7. ETHINYLESTRADIOL [Concomitant]
     Route: 048
  8. BLOPRESS [Concomitant]
     Route: 048
  9. BUFFERIN [Concomitant]
     Route: 048
  10. ZYLORIC [Concomitant]
     Route: 048
  11. PURSENNID [Concomitant]
     Route: 048
  12. LOXONIN [Concomitant]
     Route: 048

REACTIONS (1)
  - OSTEOMYELITIS [None]
